FAERS Safety Report 9402695 (Version 2)
Quarter: 2013Q3

REPORT INFORMATION
  Report Type: Not Available
  Country: FR (occurrence: FR)
  Receive Date: 20130716
  Receipt Date: 20130725
  Transmission Date: 20140515
  Serious: Yes (Hospitalization)
  Sender: FDA-Public Use
  Company Number: FR-ASTELLAS-2013US007364

PATIENT
  Age: 73 Year
  Sex: Male

DRUGS (15)
  1. TARCEVA [Suspect]
     Indication: LUNG NEOPLASM MALIGNANT
     Dosage: UNK MG, UID/QD
     Route: 048
     Dates: start: 201302
  2. KARDEGIC [Suspect]
     Indication: PRODUCT USED FOR UNKNOWN INDICATION
     Dosage: 160 MG, UID/QD
     Route: 048
  3. HUMALOG [Suspect]
     Indication: DIABETES MELLITUS
     Dosage: UNK
     Route: 058
  4. TAHOR [Suspect]
     Indication: PRODUCT USED FOR UNKNOWN INDICATION
     Dosage: 80 MG, UID/QD
     Route: 048
  5. KEPPRA [Suspect]
     Indication: PRODUCT USED FOR UNKNOWN INDICATION
     Dosage: 1000 MG, UID/QD
     Route: 048
  6. INEXIUM /01479302/ [Suspect]
     Indication: GASTROOESOPHAGEAL REFLUX DISEASE
     Dosage: 20 MG, UID/QD
     Route: 048
  7. ADANCOR [Suspect]
     Indication: ANGINA PECTORIS
     Dosage: 20 MG, UNKNOWN/D
     Route: 065
  8. SECTRAL [Suspect]
     Indication: ANGINA PECTORIS
     Dosage: 200 MG, UID/QD
     Route: 048
  9. COVERSYL /00790702/ [Suspect]
     Indication: CARDIAC FAILURE
     Dosage: 2.5 MG, UID/QD
     Route: 048
  10. XATRAL [Suspect]
     Indication: PRODUCT USED FOR UNKNOWN INDICATION
     Dosage: 10 MG, UID/QD
     Route: 048
  11. CORTANCYL [Suspect]
     Indication: PRODUCT USED FOR UNKNOWN INDICATION
     Dosage: 20 MG, UID/QD
     Route: 048
  12. DIFFU K [Suspect]
     Indication: HYPOKALAEMIA
     Dosage: 2 DF, UID/QD
     Route: 048
  13. PERINDOPRIL [Suspect]
     Indication: CARDIAC FAILURE
     Dosage: 2 MG, UID/QD
     Route: 048
  14. PERINDOPRIL [Suspect]
     Indication: DIABETES MELLITUS
     Dosage: UNK
     Route: 058
  15. LEVEMIR [Suspect]
     Indication: DIABETES MELLITUS
     Dosage: UNK
     Route: 058

REACTIONS (1)
  - Haematoma [Recovering/Resolving]
